FAERS Safety Report 25351792 (Version 1)
Quarter: 2025Q2

REPORT INFORMATION
  Report Type: Spontaneous
  Country: US (occurrence: US)
  Receive Date: 20250523
  Receipt Date: 20250523
  Transmission Date: 20250717
  Serious: Yes (Death, Other)
  Sender: AMGEN
  Company Number: US-AMGEN-USASP2025098242

PATIENT
  Age: 68 Year
  Sex: Female

DRUGS (4)
  1. TALIMOGENE LAHERPAREPVEC [Suspect]
     Active Substance: TALIMOGENE LAHERPAREPVEC
     Indication: Conjunctival melanoma
     Route: 026
  2. IPILIMUMAB [Suspect]
     Active Substance: IPILIMUMAB
     Indication: Conjunctival melanoma
     Dosage: 3 MILLIGRAM/KILOGRAM, Q4WK, FOR 4 CYCLES
     Route: 065
  3. NIVOLUMAB [Suspect]
     Active Substance: NIVOLUMAB
     Indication: Conjunctival melanoma
     Dosage: 1 MILLIGRAM/KILOGRAM, Q4WK, FOR 4 CYCLES
     Route: 065
  4. NIVOLUMAB [Suspect]
     Active Substance: NIVOLUMAB
     Dosage: 1 MILLIGRAM/KILOGRAM, Q4WK, FOR 10 CYCLES
     Route: 065

REACTIONS (2)
  - Metastatic malignant melanoma [Fatal]
  - Drug ineffective [Unknown]
